FAERS Safety Report 8577984-3 (Version None)
Quarter: 2012Q3

REPORT INFORMATION
  Report Type: 
  Country: None (occurrence: None)
  Receive Date: 20120725
  Receipt Date: 20120711
  Transmission Date: 20120928
  Serious: Yes (Life-Threatening, Disabling, Other)
  Sender: FDA-Public Use
  Company Number: 2012MA008789

PATIENT
  Age: 31 Year
  Sex: Female

DRUGS (2)
  1. VENLAFAXINE HCL [Suspect]
     Indication: ANXIETY
     Dosage: 225 MG;; PO
     Route: 048
  2. PROPRANOLOL [Concomitant]

REACTIONS (3)
  - SUICIDAL IDEATION [None]
  - RESTLESS LEGS SYNDROME [None]
  - SELF-INJURIOUS IDEATION [None]
